FAERS Safety Report 15863916 (Version 3)
Quarter: 2019Q1

REPORT INFORMATION
  Report Type: Spontaneous
  Country: JP (occurrence: JP)
  Receive Date: 20190124
  Receipt Date: 20190213
  Transmission Date: 20190417
  Serious: Yes (Hospitalization, Other)
  Sender: FDA-Public Use
  Company Number: JP-MYLANLABS-2019M1006171

PATIENT
  Age: 48 Year
  Sex: Male

DRUGS (3)
  1. AMOXICILLIN HYDRATE [Concomitant]
     Active Substance: AMOXICILLIN
     Indication: HELICOBACTER INFECTION
     Route: 048
     Dates: start: 20150830
  2. VONOSAP [Suspect]
     Active Substance: AMOXICILLIN\CLARITHROMYCIN\VONOPRAZAN FUMURATE
     Indication: HELICOBACTER INFECTION
     Route: 048
     Dates: start: 20150830
  3. VONOPRAZAN FUMARATE [Concomitant]
     Active Substance: VONOPRAZAN FUMURATE
     Indication: HELICOBACTER INFECTION
     Route: 048
     Dates: start: 20150830

REACTIONS (2)
  - Drug eruption [Recovering/Resolving]
  - Lymphocyte stimulation test positive [Unknown]

NARRATIVE: CASE EVENT DATE: 20150830
